FAERS Safety Report 11659741 (Version 2)
Quarter: 2015Q4

REPORT INFORMATION
  Report Type: Report from Study
  Country: IT (occurrence: IT)
  Receive Date: 20151026
  Receipt Date: 20151030
  Transmission Date: 20160304
  Serious: Yes (Hospitalization)
  Sender: FDA-Public Use
  Company Number: IT-TEVA-602097ACC

PATIENT
  Age: 76 Year
  Sex: Male

DRUGS (4)
  1. FOLINIC ACID [Suspect]
     Active Substance: LEUCOVORIN
     Indication: COLORECTAL CANCER METASTATIC
     Dosage: 360 MG CYCLICAL
     Route: 041
     Dates: start: 20150805, end: 20150805
  2. ZALTRAP [Suspect]
     Active Substance: ZIV-AFLIBERCEPT
     Indication: COLORECTAL CANCER METASTATIC
     Dosage: 300 MG CYCLICAL
     Route: 041
     Dates: start: 20150805, end: 20150805
  3. FLUOROURACIL. [Suspect]
     Active Substance: FLUOROURACIL
     Indication: COLORECTAL CANCER METASTATIC
     Dosage: 2800 MG CYCLICAL
     Route: 042
     Dates: start: 20150805, end: 20150805
  4. IRINOTECAN [Suspect]
     Active Substance: IRINOTECAN
     Indication: COLORECTAL CANCER METASTATIC
     Dosage: 320 MG CYCLICAL
     Route: 041
     Dates: start: 20150805, end: 20150805

REACTIONS (2)
  - Enterocutaneous fistula [Not Recovered/Not Resolved]
  - Intestinal fistula [Not Recovered/Not Resolved]

NARRATIVE: CASE EVENT DATE: 20150908
